FAERS Safety Report 5232475-2 (Version None)
Quarter: 2007Q1

REPORT INFORMATION
  Report Type: 
  Country: None (occurrence: None)
  Receive Date: 20070207
  Receipt Date: 20070130
  Transmission Date: 20070707
  Serious: Yes (Hospitalization, Other)
  Sender: FDA-Public Use
  Company Number: US-PURDUE-USA_2007_0026350

PATIENT
  Age: 43 Year
  Sex: Female

DRUGS (1)
  1. OXYCONTIN [Suspect]
     Indication: BACK PAIN
     Dosage: 80 MG, 5/DAY
     Route: 065
     Dates: start: 20060901

REACTIONS (7)
  - DRUG INEFFECTIVE [None]
  - DRUG TOLERANCE [None]
  - EMPHYSEMA [None]
  - INADEQUATE ANALGESIA [None]
  - PNEUMONIA [None]
  - PNEUMOTHORAX [None]
  - THERAPEUTIC RESPONSE DECREASED [None]
